FAERS Safety Report 4601007-1 (Version None)
Quarter: 2005Q1

REPORT INFORMATION
  Report Type: 
  Country: None (occurrence: None)
  Receive Date: 20050304
  Receipt Date: 20050304
  Transmission Date: 20050727
  Serious: Yes (Death)
  Sender: FDA-Public Use
  Company Number: None

PATIENT
  Age: 69 Year
  Sex: Male

DRUGS (10)
  1. ZOLADEX [Suspect]
     Indication: PROSTATE CANCER
     Dosage: 3.6 MG Q 28 DAYS SQ DEPOT
     Route: 058
  2. ASPIRIN [Concomitant]
  3. LIPITOR [Concomitant]
  4. LOVENOX [Concomitant]
  5. LASIX [Concomitant]
  6. MACRODANTIN [Concomitant]
  7. NITRO-BID [Concomitant]
  8. ATROPINE [Concomitant]
  9. ALBUTEROL [Concomitant]
  10. REGULAR INSULIN [Concomitant]

REACTIONS (9)
  - ANGIOPATHY [None]
  - CARDIO-RESPIRATORY ARREST [None]
  - DYSPNOEA EXERTIONAL [None]
  - ELECTROCARDIOGRAM ABNORMAL [None]
  - ENCEPHALOPATHY [None]
  - HYPOXIA [None]
  - ISCHAEMIA [None]
  - LOBAR PNEUMONIA [None]
  - THERAPY NON-RESPONDER [None]
